FAERS Safety Report 10081458 (Version 2)
Quarter: 2014Q2

REPORT INFORMATION
  Report Type: Spontaneous
  Country: JP (occurrence: JP)
  Receive Date: 20140416
  Receipt Date: 20140530
  Transmission Date: 20141212
  Serious: Yes (Other)
  Sender: FDA-Public Use
  Company Number: JP-PFIZER INC-2014100067

PATIENT
  Age: 19 Year
  Sex: Male
  Weight: 62 kg

DRUGS (3)
  1. GABAPENTIN [Suspect]
     Indication: CONVULSION
     Dosage: UNK
     Route: 048
  2. CARBAMAZEPINE [Suspect]
     Indication: CONVULSION
     Dosage: UNK
     Route: 048
  3. PHENYTOIN [Suspect]
     Indication: CONVULSION
     Dosage: UNK
     Route: 048

REACTIONS (2)
  - Hypocalcaemia [Recovered/Resolved]
  - Drug ineffective [Unknown]
